FAERS Safety Report 5809708-4 (Version None)
Quarter: 2008Q3

REPORT INFORMATION
  Report Type: 
  Country: None (occurrence: None)
  Receive Date: 20080709
  Receipt Date: 20070823
  Transmission Date: 20090109
  Serious: Yes (Other)
  Sender: FDA-Public Use
  Company Number: US-GDP- 0715310

PATIENT
  Age: 70 Year
  Sex: Female

DRUGS (4)
  1. DIFFERIN [Suspect]
     Dosage: 1 DF QD TOPICAL
     Route: 061
     Dates: start: 20060101
  2. LASIX [Concomitant]
  3. COREG [Concomitant]
  4. LIPITOR [Concomitant]

REACTIONS (1)
  - DRUG INEFFECTIVE FOR UNAPPROVED INDICATION [None]
